FAERS Safety Report 5394827-X (Version None)
Quarter: 2007Q3

REPORT INFORMATION
  Report Type: 
  Country: None (occurrence: None)
  Receive Date: 20070720
  Receipt Date: 20070712
  Transmission Date: 20080115
  Serious: Yes (Congenital Anomaly)
  Sender: FDA-Public Use
  Company Number: S07-USA-03018-02

PATIENT
  Sex: 0

DRUGS (2)
  1. LEXAPRO [Suspect]
     Dosage: 30  MG QD TRANSDERMAL
     Route: 062
  2. RISPERDAL [Concomitant]

REACTIONS (2)
  - DRUG EXPOSURE DURING PREGNANCY [None]
  - FALLOT'S TETRALOGY [None]
